FAERS Safety Report 4791303-X (Version None)
Quarter: 2005Q4

REPORT INFORMATION
  Report Type: 
  Country: None (occurrence: None)
  Receive Date: 20051007
  Receipt Date: 20050922
  Transmission Date: 20060501
  Serious: Yes (Hospitalization, Other)
  Sender: FDA-Public Use
  Company Number: PHHO2005JP15149

PATIENT
  Age: 73 Year
  Sex: Female
  Weight: 91 kg

DRUGS (8)
  1. LOCHOL [Suspect]
     Dosage: 20 MG, QD
     Route: 048
     Dates: start: 20011005, end: 20020327
  2. LOCHOL [Suspect]
     Dosage: UNK, NO TREATMENT
     Dates: start: 20020328, end: 20020426
  3. LOCHOL [Suspect]
     Dosage: 20 MG, QD
     Route: 048
     Dates: start: 20020427, end: 20050212
  4. NU-LOTAN [Concomitant]
     Indication: HYPERTENSION
     Dates: end: 20050211
  5. ACTOS [Concomitant]
     Indication: DIABETES MELLITUS
     Dates: end: 20050211
  6. BASEN [Concomitant]
     Indication: DIABETES MELLITUS
     Dates: end: 20050211
  7. AMARYL [Concomitant]
     Indication: DIABETES MELLITUS
     Dates: end: 20050211
  8. WARFARIN [Concomitant]
     Indication: VENOUS THROMBOSIS
     Dates: end: 20050211

REACTIONS (6)
  - ABSCESS INTESTINAL [None]
  - MUSCLE ATROPHY [None]
  - PYREXIA [None]
  - SURGERY [None]
  - URINARY TRACT INFECTION [None]
  - VOMITING [None]
